FAERS Safety Report 19185122 (Version 2)
Quarter: 2021Q2

REPORT INFORMATION
  Report Type: Spontaneous
  Country: US (occurrence: US)
  Receive Date: 20210427
  Receipt Date: 20210517
  Transmission Date: 20210717
  Serious: No
  Sender: FDA-Public Use
  Company Number: US-SA-2021SA136446

PATIENT
  Age: 59 Year
  Sex: Female

DRUGS (10)
  1. DUPIXENT [Suspect]
     Active Substance: DUPILUMAB
     Indication: ILLNESS
     Dosage: 300 MG, QOW
     Route: 058
  2. ALENDRONATE SODIUM. [Concomitant]
     Active Substance: ALENDRONATE SODIUM
  3. PROPRANOLOL HCL [Concomitant]
     Active Substance: PROPRANOLOL HYDROCHLORIDE
  4. CALCIUM [Concomitant]
     Active Substance: CALCIUM
  5. DUPIXENT [Suspect]
     Active Substance: DUPILUMAB
     Indication: DERMATITIS ATOPIC
  6. ATORVASTATIN CALCIUM. [Concomitant]
     Active Substance: ATORVASTATIN CALCIUM
  7. RABEPRAZOLE SODIUM. [Concomitant]
     Active Substance: RABEPRAZOLE SODIUM
  8. DUPIXENT [Suspect]
     Active Substance: DUPILUMAB
     Indication: PSORIASIS
  9. HYDROCHLOROTHIAZIDE. [Concomitant]
     Active Substance: HYDROCHLOROTHIAZIDE
  10. VITAMIN D3 [Concomitant]
     Active Substance: CHOLECALCIFEROL

REACTIONS (6)
  - Injection site pain [Unknown]
  - Weight decreased [Unknown]
  - Product use in unapproved indication [Unknown]
  - Stress [Unknown]
  - Alopecia [Unknown]
  - Injection site discomfort [Recovered/Resolved]

NARRATIVE: CASE EVENT DATE: 20210415
